FAERS Safety Report 11421731 (Version 1)
Quarter: 2015Q3

REPORT INFORMATION
  Report Type: Spontaneous
  Country: IT (occurrence: IT)
  Receive Date: 20150827
  Receipt Date: 20150827
  Transmission Date: 20151125
  Serious: Yes (Death)
  Sender: FDA-Public Use
  Company Number: IT-CIPLA LTD.-2015IT06718

PATIENT

DRUGS (2)
  1. CITALOPRAM [Suspect]
     Active Substance: CITALOPRAM HYDROBROMIDE
     Indication: DEPRESSION
     Dosage: 40 MG, QD
     Route: 065
  2. CLOTIAPINE [Suspect]
     Active Substance: CLOTHIAPINE
     Indication: DEPRESSION
     Dosage: 30 MG, QD
     Route: 065

REACTIONS (4)
  - Acute respiratory failure [Fatal]
  - Pulmonary oedema [Fatal]
  - Drowning [Fatal]
  - Drug abuse [Fatal]
